FAERS Safety Report 21884157 (Version 1)
Quarter: 2023Q1

REPORT INFORMATION
  Report Type: Spontaneous
  Country: US (occurrence: US)
  Receive Date: 20230119
  Receipt Date: 20230119
  Transmission Date: 20230418
  Serious: Yes (Other)
  Sender: FDA-Public Use
  Company Number: US-drreddys-SPO/USA/23/0159642

PATIENT
  Age: 75 Year
  Sex: Female

DRUGS (16)
  1. LENALIDOMIDE [Suspect]
     Active Substance: LENALIDOMIDE
     Indication: Plasma cell myeloma
     Dosage: TAKE 1 CAPSULE BY MOUTH EVERY DAY FOR 14 DAYS ON THEN 1 WEEK OFF
     Route: 048
     Dates: start: 20220218
  2. PANTOPRAZOLE SODIUM [Concomitant]
     Active Substance: PANTOPRAZOLE SODIUM
     Indication: Product used for unknown indication
  3. ELIQUIS [Concomitant]
     Active Substance: APIXABAN
     Indication: Product used for unknown indication
  4. ACETAMINOPHE TAB 325MG [Concomitant]
     Indication: Product used for unknown indication
  5. ACYCLOVIR TAB 800MG [Concomitant]
     Indication: Product used for unknown indication
  6. TRAMADOL HCL TAB 50MG [Concomitant]
     Indication: Product used for unknown indication
  7. VITAMIN D3 CAP 50 MCG [Concomitant]
     Indication: Product used for unknown indication
  8. BUMETANIDE TAB 1MG [Concomitant]
     Indication: Product used for unknown indication
  9. CALCIUM TAB 500MG [Concomitant]
     Indication: Product used for unknown indication
  10. DILTIAZEM HC CP2 360MG [Concomitant]
     Indication: Product used for unknown indication
  11. KLOR-CON 10 TBC 10MEQ [Concomitant]
     Indication: Product used for unknown indication
     Dosage: 10MEQ
  12. LEVOTHYROXIN TAB 75MCG [Concomitant]
     Indication: Product used for unknown indication
  13. METOPROLOL S TB2 25MG [Concomitant]
     Indication: Product used for unknown indication
  14. MULTIVITAMIN TAB [Concomitant]
     Indication: Product used for unknown indication
  15. VITAMIN D TAB 25 MCG [Concomitant]
     Indication: Product used for unknown indication
  16. ELIQUIS [Concomitant]
     Active Substance: APIXABAN
     Indication: Product used for unknown indication

REACTIONS (2)
  - Thrombosis [Recovered/Resolved]
  - Product use issue [Unknown]
